FAERS Safety Report 6928293-7 (Version None)
Quarter: 2010Q3

REPORT INFORMATION
  Report Type: 
  Country: None (occurrence: None)
  Receive Date: 20100817
  Receipt Date: 20100810
  Transmission Date: 20110219
  Serious: Yes (Other)
  Sender: FDA-Public Use
  Company Number: US-ROCHE-720438

PATIENT
  Sex: Female

DRUGS (2)
  1. BONIVA [Suspect]
     Indication: OSTEOPOROSIS
     Dosage: IBANDRONIC ACID WAS USED FOR PAGETS DISEASE, OTHER OFF LABEL USES AND FOR PREVENTION OF FRACTURES
     Route: 065
     Dates: start: 20060801, end: 20070101
  2. FOSAMAX [Suspect]
     Indication: OSTEOPOROSIS
     Dosage: ALENDRONIC ACID WAS USED FOR PAGETS DISEASE, OTHER OFF LABEL USES AND FOR PREVENTION OF FRACTURES
     Route: 065
     Dates: start: 19980601, end: 20060801

REACTIONS (3)
  - ANXIETY [None]
  - OSTEONECROSIS OF JAW [None]
  - PAIN [None]
